FAERS Safety Report 24790401 (Version 1)
Quarter: 2024Q4

REPORT INFORMATION
  Report Type: Spontaneous
  Country: CA (occurrence: US)
  Receive Date: 20241230
  Receipt Date: 20241230
  Transmission Date: 20250114
  Serious: No
  Sender: JOHNSON AND JOHNSON
  Company Number: CA-KENVUE-20241101515

PATIENT
  Age: 6 Decade
  Sex: Male

DRUGS (5)
  1. ACETAMINOPHEN [Suspect]
     Active Substance: ACETAMINOPHEN
     Indication: Arthralgia
     Dosage: UNK
     Route: 065
     Dates: start: 2024
  2. RUXIENCE [Concomitant]
     Active Substance: RITUXIMAB-PVVR
     Indication: Granulomatosis with polyangiitis
     Dosage: 500 MILLIGRAM, EVERY 6 MONTHS
     Dates: start: 20220309, end: 20220912
  3. RUXIENCE [Concomitant]
     Active Substance: RITUXIMAB-PVVR
     Dosage: 500 MILLIGRAM, EVERY 6 MONTHS
     Dates: start: 20230403, end: 20231006
  4. RUXIENCE [Concomitant]
     Active Substance: RITUXIMAB-PVVR
     Dosage: 500 MILLIGRAM, EVERY 6 MONTHS
     Dates: start: 20240404
  5. RUXIENCE [Concomitant]
     Active Substance: RITUXIMAB-PVVR
     Dosage: 500 MILLIGRAM, 500 MG, DAY 1 RETREATMENT
     Dates: start: 20241016, end: 20241016

REACTIONS (1)
  - Drug ineffective [Unknown]

NARRATIVE: CASE EVENT DATE: 20241001
